FAERS Safety Report 19298983 (Version 1)
Quarter: 2021Q2

REPORT INFORMATION
  Report Type: Spontaneous
  Country: KR (occurrence: KR)
  Receive Date: 20210524
  Receipt Date: 20210524
  Transmission Date: 20210717
  Serious: Yes (Other)
  Sender: FDA-Public Use
  Company Number: KR-GLAXOSMITHKLINE-KR2021APC106142

PATIENT
  Age: 52 Year
  Sex: Male

DRUGS (3)
  1. ZEFFIX [Suspect]
     Active Substance: LAMIVUDINE
     Indication: PRODUCT USED FOR UNKNOWN INDICATION
     Dosage: 100 MG, 1D
     Route: 048
     Dates: start: 20111115
  2. HEPSERA [Suspect]
     Active Substance: ADEFOVIR DIPIVOXIL
     Dosage: 10 MG, 1D
     Route: 048
     Dates: start: 20111115
  3. HEPSERA [Suspect]
     Active Substance: ADEFOVIR DIPIVOXIL
     Indication: PRODUCT USED FOR UNKNOWN INDICATION
     Dosage: 10 MG, 1D
     Route: 048
     Dates: end: 20110111

REACTIONS (3)
  - Drug tolerance [Unknown]
  - Blood creatinine increased [Unknown]
  - Hepatitis B [Unknown]
